FAERS Safety Report 14394341 (Version 1)
Quarter: 2018Q1

REPORT INFORMATION
  Report Type: Spontaneous
  Country: US (occurrence: US)
  Receive Date: 20180116
  Receipt Date: 20180116
  Transmission Date: 20180509
  Serious: No
  Sender: FDA-Public Use
  Company Number: US-REGENERON PHARMACEUTICALS, INC.-2017-24707

PATIENT

DRUGS (2)
  1. EYLEA [Suspect]
     Active Substance: AFLIBERCEPT
     Indication: HISTOPLASMOSIS
     Dosage: USED EYLEA ONCE
  2. AVASTIN [Concomitant]
     Active Substance: BEVACIZUMAB
     Indication: HISTOPLASMOSIS
     Dosage: RECEIVED ON A REGULAR BASIS

REACTIONS (1)
  - Off label use [Unknown]
